FAERS Safety Report 6659929-6 (Version None)
Quarter: 2010Q1

REPORT INFORMATION
  Report Type: 
  Country: None (occurrence: None)
  Receive Date: 20100330
  Receipt Date: 20100323
  Transmission Date: 20100710
  Serious: Yes (Other)
  Sender: FDA-Public Use
  Company Number: US-BRISTOL-MYERS SQUIBB COMPANY-13715206

PATIENT
  Age: 8 Year
  Sex: Female
  Weight: 27 kg

DRUGS (2)
  1. IXEMPRA KIT [Suspect]
     Indication: NEUROBLASTOMA
     Dosage: RECENT INF:02MAR07;8MG/M2 IV OVER 1 HR QD ON DAYS 1-5CYC:21D;23.4MG(TOTAL DOSE);28FEB07.
     Route: 042
     Dates: start: 20070302, end: 20070302
  2. DEXAMETHASONE [Suspect]

REACTIONS (3)
  - ABDOMINAL PAIN [None]
  - HYPERGLYCAEMIA [None]
  - HYPERTENSION [None]
